FAERS Safety Report 7376515-3 (Version None)
Quarter: 2011Q1

REPORT INFORMATION
  Report Type: 
  Country: None (occurrence: None)
  Receive Date: 20110325
  Receipt Date: 20110317
  Transmission Date: 20110831
  Serious: Yes (Death, Hospitalization)
  Sender: FDA-Public Use
  Company Number: US-BAXTER-2011BH006771

PATIENT
  Age: 59 Year
  Sex: Female

DRUGS (1)
  1. DIANEAL [Suspect]
     Indication: PERITONEAL DIALYSIS
     Route: 033
     Dates: end: 20110316

REACTIONS (5)
  - CEREBROVASCULAR ACCIDENT [None]
  - CARDIAC ARREST [None]
  - FALL [None]
  - MYOCARDIAL INFARCTION [None]
  - PELVIC FRACTURE [None]
